FAERS Safety Report 4846407-X (Version None)
Quarter: 2005Q4

REPORT INFORMATION
  Report Type: 
  Country: None (occurrence: None)
  Receive Date: 20051201
  Receipt Date: 20020523
  Transmission Date: 20060501
  Serious: Yes (Death)
  Sender: FDA-Public Use
  Company Number: L05-SWE-04316-13

PATIENT
  Age: 38 Year
  Sex: Male

DRUGS (5)
  1. CITALOPRAM HYDROBROMIDE [Suspect]
  2. ALCOHOL [Concomitant]
  3. 7-AMINO-NITRAZEPAM [Concomitant]
  4. PARACETAMOL [Concomitant]
  5. MORPHINE [Concomitant]

REACTIONS (3)
  - COMPLETED SUICIDE [None]
  - DRUG TOXICITY [None]
  - INTENTIONAL OVERDOSE [None]
